FAERS Safety Report 21086235 (Version 1)
Quarter: 2022Q3

REPORT INFORMATION
  Report Type: Spontaneous
  Country: CN (occurrence: None)
  Receive Date: 20220715
  Receipt Date: 20220715
  Transmission Date: 20221027
  Serious: Yes (Disabling)
  Sender: FDA-Public Use
  Company Number: CN-ROCHE-3133095

PATIENT
  Age: 63 Year
  Sex: Male

DRUGS (4)
  1. HERCEPTIN [Suspect]
     Active Substance: TRASTUZUMAB
     Indication: Gastric cancer
     Dosage: FORM OF ADMIN - INJECTION
     Route: 041
     Dates: start: 20220530, end: 20220530
  2. SINTILIMAB [Suspect]
     Active Substance: SINTILIMAB
     Indication: Gastric cancer
     Route: 041
     Dates: start: 20220530, end: 20220530
  3. GIMERACIL\OTERACIL\TEGAFUR [Concomitant]
     Active Substance: GIMERACIL\OTERACIL\TEGAFUR
     Indication: Gastric cancer
     Route: 048
     Dates: start: 20220531, end: 20220613
  4. OXALIPLATIN [Concomitant]
     Active Substance: OXALIPLATIN
     Indication: Gastric cancer
     Route: 041
     Dates: start: 20220530, end: 20220530

REACTIONS (1)
  - Myelosuppression [Recovering/Resolving]

NARRATIVE: CASE EVENT DATE: 20220625
